FAERS Safety Report 4707320-1 (Version None)
Quarter: 2005Q3

REPORT INFORMATION
  Report Type: 
  Country: None (occurrence: None)
  Receive Date: 20050701
  Receipt Date: 20050701
  Transmission Date: 20060218
  Serious: Yes (Other)
  Sender: FDA-Public Use
  Company Number: None

PATIENT
  Sex: Female
  Weight: 45.3597 kg

DRUGS (1)
  1. ZICAM NASAL GEL .50 OZ MATRIXX [Suspect]
     Indication: NASOPHARYNGITIS

REACTIONS (2)
  - DYSGEUSIA [None]
  - PAROSMIA [None]
